FAERS Safety Report 14794592 (Version 2)
Quarter: 2018Q2

REPORT INFORMATION
  Report Type: Spontaneous
  Country: US (occurrence: US)
  Receive Date: 20180423
  Receipt Date: 20180518
  Transmission Date: 20180711
  Serious: Yes (Hospitalization, Other)
  Sender: FDA-Public Use
  Company Number: US-ELI_LILLY_AND_COMPANY-US201804005744

PATIENT
  Age: 59 Year
  Sex: Female

DRUGS (2)
  1. DOXORUBICIN [Concomitant]
     Active Substance: DOXORUBICIN
     Indication: SPINDLE CELL SARCOMA
  2. LARTRUVO [Suspect]
     Active Substance: OLARATUMAB
     Indication: SPINDLE CELL SARCOMA
     Dosage: 970 MG, CYCLICAL
     Route: 065
     Dates: start: 20180329

REACTIONS (3)
  - Malignant neoplasm progression [Unknown]
  - Febrile neutropenia [Unknown]
  - Febrile neutropenia [Recovered/Resolved]

NARRATIVE: CASE EVENT DATE: 20180404
